FAERS Safety Report 6159119-X (Version None)
Quarter: 2009Q2

REPORT INFORMATION
  Report Type: 
  Country: None (occurrence: None)
  Receive Date: 20090417
  Receipt Date: 20090410
  Transmission Date: 20091009
  Serious: Yes (Other)
  Sender: FDA-Public Use
  Company Number: US-ELI_LILLY_AND_COMPANY-US200904002374

PATIENT
  Sex: Male
  Weight: 111.11 kg

DRUGS (9)
  1. HUMULIN N [Suspect]
     Dates: start: 19850101, end: 20040101
  2. HUMULIN R [Suspect]
     Dates: start: 19850101, end: 20040101
  3. TOPROL-XL [Concomitant]
     Indication: CORONARY ARTERY DISEASE
  4. ASPIRIN [Concomitant]
     Indication: CORONARY ARTERY DISEASE
  5. LEVOTHYROXINE SODIUM [Concomitant]
     Indication: THYROID DISORDER
  6. LANTUS [Concomitant]
  7. NOVOLOG [Concomitant]
  8. LOVASTATIN [Concomitant]
     Indication: BLOOD CHOLESTEROL INCREASED
  9. VASOTEC [Concomitant]
     Indication: HYPERTENSION

REACTIONS (7)
  - BLOOD CHOLESTEROL INCREASED [None]
  - CORONARY ARTERY DISEASE [None]
  - EYE HAEMORRHAGE [None]
  - HYPERTENSION [None]
  - MACULAR DEGENERATION [None]
  - THYROID DISORDER [None]
  - VISUAL ACUITY REDUCED [None]
